FAERS Safety Report 5897845-8 (Version None)
Quarter: 2008Q3

REPORT INFORMATION
  Report Type: 
  Country: None (occurrence: None)
  Receive Date: 20080925
  Receipt Date: 20080915
  Transmission Date: 20090109
  Serious: Yes (Other)
  Sender: FDA-Public Use
  Company Number: US-JNJFOC-20080601559

PATIENT
  Sex: Male
  Weight: 82.2 kg

DRUGS (12)
  1. REMICADE [Suspect]
     Indication: PSORIASIS
     Dosage: TOTAL # INFUSIONS: 3
     Route: 042
  2. BACTRIM [Concomitant]
  3. CYCLOSPORINE [Concomitant]
  4. LEXAPRO [Concomitant]
  5. TERAZOSIN HCL [Concomitant]
  6. ISONIAZID [Concomitant]
  7. VITAMIN B6 [Concomitant]
  8. PRESERVISION [Concomitant]
  9. LUTEIN [Concomitant]
  10. GENTAMICIN [Concomitant]
  11. LOTRIMIN [Concomitant]
  12. FLUOCINONIDE [Concomitant]

REACTIONS (1)
  - DISSEMINATED TUBERCULOSIS [None]
